FAERS Safety Report 23211200 (Version 1)
Quarter: 2023Q4

REPORT INFORMATION
  Report Type: Report from Study
  Country: EG (occurrence: EG)
  Receive Date: 20231121
  Receipt Date: 20231121
  Transmission Date: 20240110
  Serious: Yes (Hospitalization)
  Sender: FDA-Public Use
  Company Number: EG-002147023-NVSC2023EG245244

PATIENT
  Age: 37 Year
  Sex: Male

DRUGS (1)
  1. LEQVIO [Suspect]
     Active Substance: INCLISIRAN SODIUM
     Indication: Hypercholesterolaemia
     Dosage: 1 DOSAGE FORM, ONE SYRINGE THEN AFTER 3 MONTHS THEN AFTER 6 MONTHS
     Route: 058

REACTIONS (4)
  - Pyrexia [Recovered/Resolved]
  - Hypertension [Recovered/Resolved]
  - Hyperglycaemia [Recovered/Resolved]
  - Product dose omission issue [Not Recovered/Not Resolved]

NARRATIVE: CASE EVENT DATE: 20231108
